FAERS Safety Report 6490559-5 (Version None)
Quarter: 2009Q4

REPORT INFORMATION
  Report Type: 
  Country: None (occurrence: None)
  Receive Date: 20091211
  Receipt Date: 20091203
  Transmission Date: 20100525
  Serious: Yes (Hospitalization, Other)
  Sender: FDA-Public Use
  Company Number: US-ELI_LILLY_AND_COMPANY-US200912001152

PATIENT
  Age: 55 Year
  Sex: Female

DRUGS (2)
  1. EFFIENT [Suspect]
     Indication: ANGINA UNSTABLE
     Dosage: 60 MG, UNK
     Dates: start: 20091101, end: 20091101
  2. EFFIENT [Suspect]
     Dosage: 10 MG, DAILY (1/D)
     Dates: start: 20091101

REACTIONS (1)
  - CORONARY ARTERY THROMBOSIS [None]
